FAERS Safety Report 24349855 (Version 1)
Quarter: 2024Q3

REPORT INFORMATION
  Report Type: Spontaneous
  Country: US (occurrence: US)
  Receive Date: 20240923
  Receipt Date: 20240923
  Transmission Date: 20241016
  Serious: No
  Sender: ROCHE
  Company Number: US-ROCHE-3504678

PATIENT
  Sex: Male
  Weight: 12.0 kg

DRUGS (1)
  1. TAMIFLU [Suspect]
     Active Substance: OSELTAMIVIR PHOSPHATE
     Indication: Influenza
     Dosage: 6 MG/ ML
     Route: 048
     Dates: start: 20240104

REACTIONS (1)
  - Seizure [Unknown]
